FAERS Safety Report 16719609 (Version 1)
Quarter: 2019Q3

REPORT INFORMATION
  Report Type: Spontaneous
  Country: US (occurrence: US)
  Receive Date: 20190820
  Receipt Date: 20190820
  Transmission Date: 20191005
  Serious: No
  Sender: FDA-Public Use
  Company Number: US-EISAI MEDICAL RESEARCH-EC-2019-060420

PATIENT
  Sex: Female

DRUGS (2)
  1. FYCOMPA [Suspect]
     Active Substance: PERAMPANEL
     Indication: EPILEPSY
     Route: 048
     Dates: end: 2019
  2. FYCOMPA [Suspect]
     Active Substance: PERAMPANEL
     Dosage: 2 MG IN MORNING, 4 MG IN EVENING
     Route: 048
     Dates: start: 2019, end: 2019

REACTIONS (1)
  - Headache [Unknown]

NARRATIVE: CASE EVENT DATE: 2019
